FAERS Safety Report 5797318-7 (Version None)
Quarter: 2008Q3

REPORT INFORMATION
  Report Type: 
  Country: None (occurrence: None)
  Receive Date: 20080701
  Receipt Date: 20080619
  Transmission Date: 20090109
  Serious: Yes (Other)
  Sender: FDA-Public Use
  Company Number: VE-PFIZER INC-2008053597

PATIENT
  Sex: Female

DRUGS (1)
  1. CHANTIX [Suspect]
     Indication: SMOKING CESSATION THERAPY
     Route: 048
     Dates: start: 20080404, end: 20080606

REACTIONS (4)
  - CHEST PAIN [None]
  - DYSPEPSIA [None]
  - GASTRIC PERFORATION [None]
  - HAEMATEMESIS [None]
